FAERS Safety Report 14164272 (Version 2)
Quarter: 2017Q4

REPORT INFORMATION
  Report Type: Spontaneous
  Country: US (occurrence: US)
  Receive Date: 20171107
  Receipt Date: 20171123
  Transmission Date: 20180321
  Serious: No
  Sender: FDA-Public Use
  Company Number: US-BEH-2017084866

PATIENT
  Age: 35 Year
  Sex: Female

DRUGS (3)
  1. HAEMATE P [Suspect]
     Active Substance: ANTIHEMOPHILIC FACTOR HUMAN
     Indication: VON WILLEBRAND^S DISEASE
     Dosage: 3045 IU, QD AS NEEDED (PRN)
     Route: 042
     Dates: start: 20171016
  2. HAEMATE P [Suspect]
     Active Substance: ANTIHEMOPHILIC FACTOR HUMAN
     Dosage: 3045, PRN
     Route: 042
     Dates: start: 20171103
  3. HAEMATE P [Suspect]
     Active Substance: ANTIHEMOPHILIC FACTOR HUMAN
     Dosage: 3045 IU, QD AS NEEDED (PRN)
     Route: 042
     Dates: start: 20160612

REACTIONS (3)
  - Sinusitis [Not Recovered/Not Resolved]
  - Streptococcal infection [Unknown]
  - Epistaxis [Not Recovered/Not Resolved]

NARRATIVE: CASE EVENT DATE: 20171031
